FAERS Safety Report 5597188-6 (Version None)
Quarter: 2008Q1

REPORT INFORMATION
  Report Type: 
  Country: None (occurrence: None)
  Receive Date: 20080121
  Receipt Date: 20080111
  Transmission Date: 20080703
  Serious: Yes (Other)
  Sender: FDA-Public Use
  Company Number: US-JNJFOC-20080102950

PATIENT
  Sex: Female
  Weight: 49.9 kg

DRUGS (4)
  1. FENTANYL TRANSDERMAL SYSTEM [Suspect]
     Route: 062
  2. FENTANYL TRANSDERMAL SYSTEM [Suspect]
     Indication: POUCHITIS
     Route: 062
  3. FENTANYL TRANSDERMAL SYSTEM [Suspect]
     Indication: POUCHITIS
     Route: 062
  4. CIPRO [Concomitant]
     Indication: POUCHITIS
     Route: 048

REACTIONS (5)
  - APPLICATION SITE ERYTHEMA [None]
  - APPLICATION SITE PRURITUS [None]
  - DERMATITIS CONTACT [None]
  - PHOTOPHOBIA [None]
  - VISUAL DISTURBANCE [None]
